FAERS Safety Report 9794674 (Version 2)
Quarter: 2014Q1

REPORT INFORMATION
  Report Type: Spontaneous
  Country: FR (occurrence: FR)
  Receive Date: 20140102
  Receipt Date: 20140221
  Transmission Date: 20141002
  Serious: Yes (Hospitalization)
  Sender: FDA-Public Use
  Company Number: FR-ALLERGAN-1320208US

PATIENT
  Age: 25 Year
  Sex: Female

DRUGS (6)
  1. BOTOX [Suspect]
     Indication: NEUROGENIC BLADDER
     Dosage: 300 UNITS, SINGLE
     Dates: start: 20131011, end: 20131011
  2. BOTOX [Suspect]
     Indication: URINARY INCONTINENCE
     Dosage: 200 UNK, UNK
  3. BOTOX [Suspect]
     Dosage: 200 UNK, UNK
  4. BOTOX [Suspect]
     Dosage: 200 UNITS, SINGLE
  5. BOTOX [Suspect]
     Dosage: 100 UNK, UNK
  6. LYRICA [Concomitant]

REACTIONS (3)
  - Botulism [Not Recovered/Not Resolved]
  - Neuromyopathy [Unknown]
  - Fatigue [Not Recovered/Not Resolved]
